FAERS Safety Report 16233126 (Version 3)
Quarter: 2019Q2

REPORT INFORMATION
  Report Type: Spontaneous
  Country: US (occurrence: US)
  Receive Date: 20190424
  Receipt Date: 20190628
  Transmission Date: 20190711
  Serious: Yes (Hospitalization, Other)
  Sender: FDA-Public Use
  Company Number: US-PFIZER INC-2019169556

PATIENT
  Age: 59 Year
  Sex: Female
  Weight: 68.4 kg

DRUGS (1)
  1. LYRICA [Suspect]
     Active Substance: PREGABALIN
     Indication: ARTHRALGIA
     Dosage: 75 MG, TWICE A DAY
     Route: 048
     Dates: start: 20190411, end: 20190412

REACTIONS (9)
  - Thinking abnormal [Recovered/Resolved]
  - Crying [Recovering/Resolving]
  - Product use in unapproved indication [Unknown]
  - Emotional disorder [Not Recovered/Not Resolved]
  - Confusional state [Recovered/Resolved]
  - Feeling abnormal [Recovered/Resolved]
  - Malaise [Recovered/Resolved]
  - Off label use [Unknown]
  - Poor quality sleep [Recovered/Resolved]

NARRATIVE: CASE EVENT DATE: 20190411
